FAERS Safety Report 4335905-3 (Version None)
Quarter: 2004Q2

REPORT INFORMATION
  Report Type: 
  Country: None (occurrence: None)
  Receive Date: 20040409
  Receipt Date: 20031209
  Transmission Date: 20050107
  Serious: Yes (Hospitalization)
  Sender: FDA-Public Use
  Company Number: US-BRISTOL-MYERS SQUIBB COMPANY-12464228

PATIENT
  Age: 73 Year
  Sex: Female

DRUGS (2)
  1. TEQUIN [Suspect]
     Indication: URINARY TRACT INFECTION
  2. SULFONYLUREA [Concomitant]

REACTIONS (1)
  - HYPOGLYCAEMIA [None]
